FAERS Safety Report 10161183 (Version 5)
Quarter: 2017Q3

REPORT INFORMATION
  Report Type: Spontaneous
  Country: CA (occurrence: CA)
  Receive Date: 20140508
  Receipt Date: 20170720
  Transmission Date: 20171127
  Serious: Yes (Other)
  Sender: FDA-Public Use
  Company Number: CA-TAKEDA-2014TUS001149

PATIENT
  Age: 44 Year
  Sex: Female

DRUGS (13)
  1. AZATHIOPRINE. [Interacting]
     Active Substance: AZATHIOPRINE
     Indication: MYOPATHY
     Dosage: 125 MG, QD
     Route: 065
  2. METHOTREXATE. [Suspect]
     Active Substance: METHOTREXATE
     Indication: MYOPATHY
     Dosage: UNK
     Route: 058
  3. IMMUNOGLOBULIN (IVIG) [Concomitant]
     Active Substance: HUMAN IMMUNOGLOBULIN G
     Indication: MYOPATHY
     Dosage: UNK
     Route: 042
  4. AZATHIOPRINE. [Interacting]
     Active Substance: AZATHIOPRINE
     Indication: IMMUNE-MEDIATED NECROTISING MYOPATHY
     Dosage: 150 MG, QD
     Route: 065
  5. MYCOPHENOLATE MOFETIL. [Suspect]
     Active Substance: MYCOPHENOLATE MOFETIL
     Indication: PRODUCT USED FOR UNKNOWN INDICATION
     Dosage: UNK
     Route: 058
  6. RITUXAN [Suspect]
     Active Substance: RITUXIMAB
     Indication: PRODUCT USED FOR UNKNOWN INDICATION
     Dosage: UNK
     Route: 065
  7. ULORIC [Interacting]
     Active Substance: FEBUXOSTAT
     Indication: IMMUNE-MEDIATED NECROTISING MYOPATHY
  8. AZATHIOPRINE. [Interacting]
     Active Substance: AZATHIOPRINE
     Dosage: 250 MG, QD
     Route: 065
  9. ALLOPURINOL. [Suspect]
     Active Substance: ALLOPURINOL
     Indication: IMMUNE-MEDIATED NECROTISING MYOPATHY
     Dosage: 400 MG, QD
     Route: 065
  10. ULORIC [Suspect]
     Active Substance: FEBUXOSTAT
     Indication: MYOPATHY
     Dosage: 40 MG, QD
     Route: 048
  11. AZATHIOPRINE. [Interacting]
     Active Substance: AZATHIOPRINE
     Dosage: 25 MG, QD
     Route: 065
  12. AZATHIOPRINE. [Interacting]
     Active Substance: AZATHIOPRINE
     Dosage: 50 MG, QD
     Route: 065
  13. ALLOPURINOL. [Suspect]
     Active Substance: ALLOPURINOL
     Indication: MYOPATHY
     Dosage: 100 MG, QD
     Route: 065

REACTIONS (4)
  - Drug interaction [Unknown]
  - Drug ineffective [Unknown]
  - Product use in unapproved indication [Unknown]
  - Drug reaction with eosinophilia and systemic symptoms [Recovering/Resolving]
